FAERS Safety Report 4789005-9 (Version None)
Quarter: 2005Q4

REPORT INFORMATION
  Report Type: 
  Country: None (occurrence: None)
  Receive Date: 20051004
  Receipt Date: 20050920
  Transmission Date: 20060501
  Serious: Yes (Other)
  Sender: FDA-Public Use
  Company Number: 2005133308

PATIENT
  Sex: Female

DRUGS (1)
  1. DETROL [Suspect]
     Indication: ILL-DEFINED DISORDER

REACTIONS (3)
  - DRY MOUTH [None]
  - GLAUCOMA [None]
  - MACULAR DEGENERATION [None]
